FAERS Safety Report 6902481-8 (Version None)
Quarter: 2010Q3

REPORT INFORMATION
  Report Type: 
  Country: None (occurrence: None)
  Receive Date: 20100802
  Receipt Date: 20100802
  Transmission Date: 20110219
  Serious: Yes (Other)
  Sender: FDA-Public Use
  Company Number: None

PATIENT
  Sex: Female

DRUGS (1)
  1. TOPAMAX [Suspect]
     Indication: BIPOLAR DISORDER
     Dosage: 100MG BID ORAL
     Route: 048
     Dates: start: 20090601, end: 20090701

REACTIONS (3)
  - DIZZINESS [None]
  - MOOD ALTERED [None]
  - NAUSEA [None]
